FAERS Safety Report 20992654 (Version 1)
Quarter: 2022Q2

REPORT INFORMATION
  Report Type: Spontaneous
  Country: FR (occurrence: FR)
  Receive Date: 20220622
  Receipt Date: 20220622
  Transmission Date: 20220721
  Serious: Yes (Death)
  Sender: FDA-Public Use
  Company Number: None

PATIENT
  Age: 58 Year
  Sex: Male

DRUGS (4)
  1. SILDENAFIL CITRATE [Suspect]
     Active Substance: SILDENAFIL CITRATE
     Dosage: UNK
     Route: 048
     Dates: end: 202205
  2. CETIRIZINE HYDROCHLORIDE [Suspect]
     Active Substance: CETIRIZINE HYDROCHLORIDE
     Dosage: UNK
     Route: 048
     Dates: end: 202205
  3. TENAMFETAMINE [Suspect]
     Active Substance: TENAMFETAMINE
     Dosage: UNK
     Route: 048
     Dates: start: 202205, end: 202205
  4. MIDOMAFETAMINE [Suspect]
     Active Substance: MIDOMAFETAMINE
     Dosage: UNK

REACTIONS (4)
  - Poisoning [Fatal]
  - Cardio-respiratory arrest [Fatal]
  - Seizure [Fatal]
  - Drug abuse [Fatal]

NARRATIVE: CASE EVENT DATE: 20220501
